FAERS Safety Report 16713662 (Version 1)
Quarter: 2019Q3

REPORT INFORMATION
  Report Type: Spontaneous
  Country: US (occurrence: US)
  Receive Date: 20190819
  Receipt Date: 20190819
  Transmission Date: 20191004
  Serious: No
  Sender: FDA-Public Use
  Company Number: US-TEVA-2018-US-905501

PATIENT
  Age: 27 Year
  Sex: Female

DRUGS (3)
  1. DEXAMETHASONE. [Suspect]
     Active Substance: DEXAMETHASONE
     Indication: ARRHYTHMIA PROPHYLAXIS
     Route: 065
  2. DIGOXIN. [Suspect]
     Active Substance: DIGOXIN
     Indication: ARRHYTHMIA PROPHYLAXIS
     Route: 065
  3. FLECAINIDE [Suspect]
     Active Substance: FLECAINIDE
     Indication: ARRHYTHMIA PROPHYLAXIS
     Route: 065

REACTIONS (1)
  - Maternal exposure during pregnancy [Unknown]
